FAERS Safety Report 16142294 (Version 2)
Quarter: 2019Q2

REPORT INFORMATION
  Report Type: Spontaneous
  Country: US (occurrence: US)
  Receive Date: 20190401
  Receipt Date: 20190527
  Transmission Date: 20190711
  Serious: No
  Sender: FDA-Public Use
  Company Number: US-SA-2019SA087875

PATIENT
  Age: 60 Year
  Sex: Female

DRUGS (2)
  1. ENOXAPARIN SODIUM. [Suspect]
     Active Substance: ENOXAPARIN SODIUM
     Indication: PULMONARY EMBOLISM
  2. ENOXAPARIN SODIUM. [Suspect]
     Active Substance: ENOXAPARIN SODIUM
     Indication: DEEP VEIN THROMBOSIS
     Dosage: 150 MG, BID
     Route: 065

REACTIONS (7)
  - Dysphonia [Unknown]
  - Device malfunction [Unknown]
  - Vocal cord thickening [Unknown]
  - Dysphagia [Unknown]
  - Fall [Unknown]
  - Venous thrombosis limb [Unknown]
  - Throat irritation [Unknown]
